FAERS Safety Report 9469347 (Version 2)
Quarter: 2014Q1

REPORT INFORMATION
  Report Type: Report from Study
  Country: DE (occurrence: DE)
  Receive Date: 20130821
  Receipt Date: 20140304
  Transmission Date: 20141002
  Serious: No
  Sender: FDA-Public Use
  Company Number: PHHY2013DE090553

PATIENT
  Sex: Male
  Weight: 65 kg

DRUGS (5)
  1. AMN107 [Suspect]
     Indication: CHRONIC MYELOID LEUKAEMIA
     Dosage: 800 MG, PER DAY
     Route: 048
     Dates: start: 20121221
  2. OMEPRAZOL [Concomitant]
     Dosage: 20 MG, UNK
  3. RAMIPRIL [Concomitant]
     Dosage: 10 MG, UNK
     Dates: end: 20130617
  4. AMLODIPIN [Concomitant]
     Dosage: 5 MG, UNK
  5. ATACAND [Concomitant]
     Dates: start: 20130618

REACTIONS (2)
  - Tinnitus [Recovered/Resolved]
  - Hypertonia [Not Recovered/Not Resolved]
